FAERS Safety Report 15298949 (Version 4)
Quarter: 2018Q4

REPORT INFORMATION
  Report Type: Spontaneous
  Country: CA (occurrence: CA)
  Receive Date: 20180821
  Receipt Date: 20181101
  Transmission Date: 20190204
  Serious: Yes (Other)
  Sender: FDA-Public Use
  Company Number: CA-CELLTRION INC.-2018CA021989

PATIENT

DRUGS (5)
  1. INFLECTRA [Suspect]
     Active Substance: INFLIXIMAB-DYYB
     Dosage: 10 MG/KG (800MG) EVERY 4 WEEKS FOR 12 MONTHS
     Route: 042
     Dates: start: 20180730
  2. INFLECTRA [Suspect]
     Active Substance: INFLIXIMAB-DYYB
     Dosage: 10 MG/KG EVERY 4 WEEKS FOR 12 MONTHS
     Route: 042
     Dates: start: 20180827, end: 20180827
  3. IMURAN [Concomitant]
     Active Substance: AZATHIOPRINE
  4. INFLECTRA [Suspect]
     Active Substance: INFLIXIMAB-DYYB
     Indication: CROHN^S DISEASE
     Dosage: 10 MG/KG, CYCLIC, THEN EVERY 4 WEEKS
     Route: 042
     Dates: start: 20180730
  5. INFLECTRA [Suspect]
     Active Substance: INFLIXIMAB-DYYB
     Dosage: 10 MG/KG EVERY 4 WEEKS FOR 12 MONTHS
     Route: 042
     Dates: start: 20180827

REACTIONS (6)
  - Heart rate irregular [Unknown]
  - Rash [Unknown]
  - Pruritus [Recovered/Resolved]
  - Product use issue [Unknown]
  - C-reactive protein increased [Unknown]
  - Condition aggravated [Unknown]

NARRATIVE: CASE EVENT DATE: 20180730
